FAERS Safety Report 10974952 (Version 1)
Quarter: 2015Q2

REPORT INFORMATION
  Report Type: Report from Study
  Country: DE (occurrence: DE)
  Receive Date: 20150401
  Receipt Date: 20150401
  Transmission Date: 20150821
  Serious: Yes (Hospitalization)
  Sender: FDA-Public Use
  Company Number: DE-CELGENE-062-21880-12112995

PATIENT
  Age: 76 Year
  Sex: Male
  Weight: 102 kg

DRUGS (23)
  1. REVLIMID [Suspect]
     Active Substance: LENALIDOMIDE
     Indication: PLASMA CELL MYELOMA RECURRENT
     Dosage: DAY 1 - 21
     Route: 048
     Dates: start: 20111116, end: 20120430
  2. CLEXANE [Concomitant]
     Active Substance: ENOXAPARIN SODIUM
     Indication: ANTICOAGULANT THERAPY
     Dosage: 40 MILLIGRAM
     Route: 058
     Dates: start: 20111115
  3. ZOMETA [Concomitant]
     Active Substance: ZOLEDRONIC ACID
     Indication: PROPHYLAXIS
     Route: 041
     Dates: start: 201003
  4. BUPIVACAIN [Concomitant]
     Active Substance: BUPIVACAINE
     Indication: PLASMACYTOMA
     Route: 058
     Dates: start: 20121128, end: 20121128
  5. FUCIDINE [Concomitant]
     Active Substance: FUSIDIC ACID
     Indication: PLASMACYTOMA
     Dosage: 30/100
     Route: 061
     Dates: start: 20121128
  6. DEXAMETHASONE. [Suspect]
     Active Substance: DEXAMETHASONE
     Indication: PLASMA CELL MYELOMA RECURRENT
     Route: 048
     Dates: start: 20111116, end: 20121113
  7. ISOPTO-MAX [Concomitant]
     Indication: INFECTION PROPHYLAXIS
     Dosage: 1MG/G
     Route: 061
     Dates: start: 20121128
  8. LEVETIRACETAM. [Concomitant]
     Active Substance: LEVETIRACETAM
     Indication: EPILEPSY
     Route: 065
  9. ESIDRIX [Concomitant]
     Active Substance: HYDROCHLOROTHIAZIDE
     Indication: HYPERTENSION
     Dosage: 50/25 MG
     Route: 048
     Dates: start: 20120207
  10. KEPPRA [Concomitant]
     Active Substance: LEVETIRACETAM
     Indication: PROPHYLAXIS
     Dosage: 1500 MILLIGRAM
     Route: 048
     Dates: start: 20120331
  11. REVLIMID [Suspect]
     Active Substance: LENALIDOMIDE
     Dosage: DAY 1 - 21
     Route: 048
     Dates: start: 20120507, end: 20121112
  12. ACICLOVIR [Concomitant]
     Active Substance: ACYCLOVIR
     Indication: ANTIVIRAL PROPHYLAXIS
     Dosage: 800 MILLIGRAM
     Route: 048
     Dates: start: 20111115
  13. CLEXANE [Concomitant]
     Active Substance: ENOXAPARIN SODIUM
     Indication: ANTIPLATELET THERAPY
  14. DUO TRAV [Concomitant]
     Indication: INTRAOCULAR PRESSURE INCREASED
     Dosage: 30/2 MG/ML
     Route: 061
     Dates: start: 20120824
  15. PANTOPRAZOLE [Concomitant]
     Active Substance: PANTOPRAZOLE SODIUM
     Indication: GASTRITIS PROPHYLAXIS
     Dosage: 40 MILLIGRAM
     Route: 048
     Dates: start: 20111115
  16. TARGIN [Concomitant]
     Active Substance: NALOXONE HYDROCHLORIDE\OXYCODONE HYDROCHLORIDE
     Indication: BONE PAIN
     Dosage: 5/2.5MG
     Route: 048
     Dates: start: 20120924
  17. TIM [Concomitant]
     Indication: INTRAOCULAR PRESSURE INCREASED
     Dosage: UNK %
     Route: 047
     Dates: start: 2007
  18. ACETYLSALICYLIC ACID [Concomitant]
     Active Substance: ASPIRIN
     Indication: THROMBOSIS PROPHYLAXIS
     Dosage: 100 MILLIGRAM
     Route: 048
     Dates: start: 20120331, end: 20121127
  19. IDEOS [Concomitant]
     Active Substance: CALCIUM CARBONATE\CHOLECALCIFEROL
     Indication: MINERAL SUPPLEMENTATION
     Dosage: 2500 MILLIGRAM
     Route: 048
     Dates: start: 20120814
  20. CORIFEO [Concomitant]
     Indication: HYPERTENSION
     Dosage: 5 MILLIGRAM
     Route: 048
     Dates: start: 20120207
  21. LACTULOSE. [Concomitant]
     Active Substance: LACTULOSE
     Indication: CONSTIPATION
     Dosage: 10 MILLILITER
     Route: 048
     Dates: start: 201107, end: 20121127
  22. MUCOSOLVAN [Concomitant]
     Active Substance: AMBROXOL\CLENBUTEROL
     Indication: BRONCHITIS
     Dosage: 30/2 MG/ML
     Route: 048
     Dates: start: 20120818
  23. PRAVASTATIN [Concomitant]
     Active Substance: PRAVASTATIN\PRAVASTATIN SODIUM
     Indication: PROPHYLAXIS
     Dosage: 20 MILLIGRAM
     Route: 048
     Dates: start: 20120331, end: 20121108

REACTIONS (2)
  - Plasma cell myeloma [Recovered/Resolved]
  - Lung disorder [Not Recovered/Not Resolved]

NARRATIVE: CASE EVENT DATE: 20121023
